FAERS Safety Report 5532237-2 (Version None)
Quarter: 2007Q4

REPORT INFORMATION
  Report Type: 
  Country: None (occurrence: None)
  Receive Date: 20071129
  Receipt Date: 20071129
  Transmission Date: 20080405
  Serious: Yes (Life-Threatening, Hospitalization)
  Sender: FDA-Public Use
  Company Number: None

PATIENT
  Age: 60 Year
  Sex: Female

DRUGS (10)
  1. ABILIFY [Suspect]
     Dosage: 30MG DAILY PO
     Route: 048
     Dates: start: 20070928
  2. AMITRIPTLINE HCL [Concomitant]
  3. CYMBALTA [Concomitant]
  4. NEXIUM [Concomitant]
  5. SINGULAIR [Concomitant]
  6. BENZONATATE [Concomitant]
  7. LITHIUM CARBONATE [Concomitant]
  8. ULTRACET [Concomitant]
  9. SPIRIVA [Concomitant]
  10. DEPAKOTE [Concomitant]

REACTIONS (10)
  - BODY TEMPERATURE INCREASED [None]
  - FAECAL INCONTINENCE [None]
  - HYPERGLYCAEMIA [None]
  - HYPOTENSION [None]
  - OXYGEN SATURATION DECREASED [None]
  - PULMONARY EMBOLISM [None]
  - RHABDOMYOLYSIS [None]
  - SPEECH DISORDER [None]
  - UNRESPONSIVE TO STIMULI [None]
  - VOMITING [None]
